FAERS Safety Report 6971967-2 (Version None)
Quarter: 2010Q3

REPORT INFORMATION
  Report Type: 
  Country: None (occurrence: None)
  Receive Date: 20100908
  Receipt Date: 20100908
  Transmission Date: 20110219
  Serious: Yes (Other)
  Sender: FDA-Public Use
  Company Number: None

PATIENT
  Age: 49 Year
  Sex: Female
  Weight: 80.2867 kg

DRUGS (1)
  1. LYRICA [Suspect]
     Indication: FIBROMYALGIA
     Dosage: 150 MG BID ORAL
     Route: 048
     Dates: start: 20070801, end: 20100801

REACTIONS (2)
  - ABDOMINAL PAIN [None]
  - SEROTONIN SYNDROME [None]
